FAERS Safety Report 12802705 (Version 1)
Quarter: 2016Q4

REPORT INFORMATION
  Report Type: Spontaneous
  Country: US (occurrence: US)
  Receive Date: 20161003
  Receipt Date: 20161003
  Transmission Date: 20170207
  Serious: Yes (Hospitalization, Other)
  Sender: FDA-Public Use
  Company Number: US-OTSUKA-2016_022821

PATIENT
  Sex: Female

DRUGS (4)
  1. PLETAL [Suspect]
     Active Substance: CILOSTAZOL
     Indication: STENT PLACEMENT
     Dosage: 75 MG, QD
     Route: 048
  2. PLAVIX [Concomitant]
     Active Substance: CLOPIDOGREL BISULFATE
     Indication: PRODUCT USED FOR UNKNOWN INDICATION
     Dosage: UNK
     Route: 065
  3. PLETAL [Suspect]
     Active Substance: CILOSTAZOL
     Indication: DRESSLER^S SYNDROME
  4. ECOTRIN [Concomitant]
     Active Substance: ASPIRIN
     Indication: PRODUCT USED FOR UNKNOWN INDICATION
     Dosage: UNK
     Route: 065

REACTIONS (11)
  - Basal ganglia infarction [Unknown]
  - Urinary tract infection [Unknown]
  - Blood pressure increased [Unknown]
  - Contraindicated product administered [Unknown]
  - Underdose [Unknown]
  - Disorientation [Unknown]
  - Off label use [Unknown]
  - Cerebrovascular accident [Unknown]
  - Mental status changes [Unknown]
  - Confusional state [Unknown]
  - Dehydration [Unknown]

NARRATIVE: CASE EVENT DATE: 20160920
